FAERS Safety Report 16284455 (Version 2)
Quarter: 2019Q3

REPORT INFORMATION
  Report Type: Report from Study
  Country: US (occurrence: US)
  Receive Date: 20190508
  Receipt Date: 20190920
  Transmission Date: 20191004
  Serious: Yes (Other)
  Sender: FDA-Public Use
  Company Number: US-ROCHE-2020208

PATIENT
  Age: 38 Year
  Sex: Female
  Weight: 54.48 kg

DRUGS (9)
  1. EVENING PRIMROSE OIL [OENOTHERA BIENNIS OIL] [Concomitant]
  2. CYMBALTA [Concomitant]
     Active Substance: DULOXETINE HYDROCHLORIDE
     Route: 065
  3. INFLUENZA VIRUS [Concomitant]
     Active Substance: INFLUENZA VIRUS VACCINE
     Route: 065
     Dates: start: 20180928
  4. OCREVUS [Suspect]
     Active Substance: OCRELIZUMAB
     Indication: RELAPSING MULTIPLE SCLEROSIS
     Dosage: 300MG IV ON DAYS 1 AND 15, ONGOING: YES?SUBSEQUENT DOSE: 600 MG, EVERY 6 MONTHS?30/OCT/2017
     Route: 042
     Dates: start: 2016
  5. VICKS NYQUIL [Concomitant]
     Active Substance: ACETAMINOPHEN\DEXTROMETHORPHAN HYDROBROMIDE\DOXYLAMINE SUCCINATE
     Indication: RELAPSING MULTIPLE SCLEROSIS
     Dosage: ONGOING: UNKNOWN
     Route: 065
  6. REBIF [Concomitant]
     Active Substance: INTERFERON BETA-1A
     Indication: RELAPSING MULTIPLE SCLEROSIS
  7. VALPROIC ACID. [Concomitant]
     Active Substance: VALPROIC ACID
  8. ALPHA LIPOIC ACID [Concomitant]
     Active Substance: .ALPHA.-LIPOIC ACID
  9. IRON [Concomitant]
     Active Substance: IRON

REACTIONS (22)
  - Anaemia [Not Recovered/Not Resolved]
  - Memory impairment [Unknown]
  - Discomfort [Not Recovered/Not Resolved]
  - Weight decreased [Not Recovered/Not Resolved]
  - Sedation [Unknown]
  - Bursitis [Unknown]
  - Pyrexia [Unknown]
  - Peripheral nerve injury [Not Recovered/Not Resolved]
  - Cholelithiasis [Unknown]
  - Diarrhoea [Unknown]
  - Migraine [Not Recovered/Not Resolved]
  - Depression [Unknown]
  - Intervertebral disc protrusion [Unknown]
  - Chills [Not Recovered/Not Resolved]
  - Anxiety [Not Recovered/Not Resolved]
  - Nephrolithiasis [Unknown]
  - Restlessness [Not Recovered/Not Resolved]
  - Bone fragmentation [Unknown]
  - Myalgia [Not Recovered/Not Resolved]
  - Fatigue [Not Recovered/Not Resolved]
  - Influenza [Unknown]
  - Nausea [Unknown]

NARRATIVE: CASE EVENT DATE: 20171030
